FAERS Safety Report 7057804-9 (Version None)
Quarter: 2010Q4

REPORT INFORMATION
  Report Type: 
  Country: None (occurrence: None)
  Receive Date: 20101022
  Receipt Date: 20101012
  Transmission Date: 20110411
  Serious: Yes (Other)
  Sender: FDA-Public Use
  Company Number: US-PFIZER INC-2010110873

PATIENT
  Sex: Female

DRUGS (6)
  1. XALATAN [Suspect]
     Dosage: UNK
  2. LUMIGAN [Suspect]
     Dosage: UNK
  3. BETIMOL [Suspect]
     Dosage: UNK
  4. TIMOPTIC [Suspect]
     Dosage: UNK
  5. TRAVOPROST [Suspect]
     Dosage: UNK
  6. COSOPT [Suspect]
     Dosage: UNK

REACTIONS (4)
  - EYELID IRRITATION [None]
  - INTRAOCULAR PRESSURE TEST ABNORMAL [None]
  - OCULAR HYPERAEMIA [None]
  - PRURITUS [None]
